FAERS Safety Report 5736184-2 (Version None)
Quarter: 2008Q2

REPORT INFORMATION
  Report Type: 
  Country: None (occurrence: None)
  Receive Date: 20080513
  Receipt Date: 20080506
  Transmission Date: 20081010
  Serious: Yes (Other)
  Sender: FDA-Public Use
  Company Number: AT-ABBOTT-08P-009-0450547-00

PATIENT

DRUGS (2)
  1. CYCLOSPORINE [Suspect]
     Indication: DRUG USE FOR UNKNOWN INDICATION
     Dosage: NOT REPORTED
  2. EVEROLIMUS [Suspect]
     Indication: DRUG USE FOR UNKNOWN INDICATION
     Dosage: NOT REPORTED

REACTIONS (2)
  - IMPAIRED HEALING [None]
  - POSTOPERATIVE THORACIC PROCEDURE COMPLICATION [None]
